FAERS Safety Report 7755439-3 (Version None)
Quarter: 2011Q3

REPORT INFORMATION
  Report Type: 
  Country: None (occurrence: None)
  Receive Date: 20110916
  Receipt Date: 20110903
  Transmission Date: 20111222
  Serious: Yes (Hospitalization)
  Sender: FDA-Public Use
  Company Number: TR-MYLANLABS-2011S1018788

PATIENT
  Age: 28 Year
  Sex: Male

DRUGS (2)
  1. PHENIRAMINE [Concomitant]
     Indication: URTICARIA
     Dosage: 10ML OF 100ML SOLUTION CONTAINING PHENIRAMINE 45MG AND RANITIDINE 50MG
     Route: 041
  2. RANITIDINE [Suspect]
     Indication: URTICARIA
     Dosage: 10ML OF 100ML SOLUTION CONTAINING RANITIDINE 50MG AND PHENIRAMINE 45MG
     Route: 041

REACTIONS (3)
  - BRADYCARDIA [None]
  - HYPOTENSION [None]
  - NODAL RHYTHM [None]
